FAERS Safety Report 7059891-0 (Version None)
Quarter: 2010Q4

REPORT INFORMATION
  Report Type: 
  Country: None (occurrence: None)
  Receive Date: 20101025
  Receipt Date: 20101020
  Transmission Date: 20110411
  Serious: Yes (Life-Threatening, Other)
  Sender: FDA-Public Use
  Company Number: PHHY2010BR70837

PATIENT
  Age: 72 Year
  Sex: Female
  Weight: 58 kg

DRUGS (3)
  1. LEPONEX [Suspect]
     Indication: CONFUSIONAL STATE
     Dosage: 1/4 OF TABLET OF 25 MG
     Route: 048
     Dates: start: 20100801
  2. PROLOPA [Concomitant]
     Dosage: UNK
  3. PRAMIPEXOLE DIHYDROCHLORIDE [Concomitant]

REACTIONS (4)
  - FALL [None]
  - FEMUR FRACTURE [None]
  - HALLUCINATION, VISUAL [None]
  - SOMNOLENCE [None]
